FAERS Safety Report 14525176 (Version 2)
Quarter: 2019Q4

REPORT INFORMATION
  Report Type: Spontaneous
  Country: KZ (occurrence: KZ)
  Receive Date: 20180213
  Receipt Date: 20191211
  Transmission Date: 20200122
  Serious: Yes (Life-Threatening, Other)
  Sender: FDA-Public Use
  Company Number: KZ-JNJFOC-20180210434

PATIENT
  Age: 18 Year
  Sex: Female
  Weight: 44 kg

DRUGS (17)
  1. MOXIFLOXACIN. [Suspect]
     Active Substance: MOXIFLOXACIN
     Indication: TUBERCULOSIS
     Route: 065
     Dates: start: 20170831, end: 20180202
  2. BEDAQUILINE [Suspect]
     Active Substance: BEDAQUILINE
     Route: 048
     Dates: start: 20180219
  3. CAPREOMYCIN [Suspect]
     Active Substance: CAPREOMYCIN
     Indication: TUBERCULOSIS
     Route: 065
     Dates: start: 20170831, end: 20180202
  4. CYCLOSERINE. [Suspect]
     Active Substance: CYCLOSERINE
     Indication: TUBERCULOSIS
     Route: 065
     Dates: start: 20170831, end: 20180202
  5. CYCLOSERINE. [Suspect]
     Active Substance: CYCLOSERINE
     Route: 065
     Dates: start: 20180215
  6. LINEZOLID. [Suspect]
     Active Substance: LINEZOLID
     Route: 065
  7. CLOFAZIMINE [Suspect]
     Active Substance: CLOFAZIMINE
     Indication: TUBERCULOSIS
     Route: 065
     Dates: start: 20170831
  8. CAPREOMYCIN [Suspect]
     Active Substance: CAPREOMYCIN
     Route: 065
     Dates: start: 20180219
  9. MOXIFLOXACIN. [Suspect]
     Active Substance: MOXIFLOXACIN
     Route: 065
     Dates: start: 20180213
  10. BEDAQUILINE [Suspect]
     Active Substance: BEDAQUILINE
     Indication: TUBERCULOSIS
     Route: 048
     Dates: start: 20170831
  11. LINEZOLID. [Suspect]
     Active Substance: LINEZOLID
     Indication: TUBERCULOSIS
     Route: 065
     Dates: start: 20170831, end: 20180202
  12. CLOFAZIMINE [Suspect]
     Active Substance: CLOFAZIMINE
     Route: 065
     Dates: end: 20180202
  13. VITAMIN B6 [Concomitant]
     Active Substance: PYRIDOXINE HYDROCHLORIDE
     Route: 065
  14. LEVOFLOXACIN. [Suspect]
     Active Substance: LEVOFLOXACIN
     Indication: TUBERCULOSIS
     Dosage: STOPPED ON 02/FEB/2019 AND REINTRODUCED AFTERWARDS.
     Route: 065
     Dates: end: 20180202
  15. LEVOFLOXACIN. [Suspect]
     Active Substance: LEVOFLOXACIN
     Route: 065
  16. BEDAQUILINE [Suspect]
     Active Substance: BEDAQUILINE
     Route: 048
     Dates: end: 20180202
  17. CLOFAZIMINE [Suspect]
     Active Substance: CLOFAZIMINE
     Route: 065
     Dates: start: 20180213

REACTIONS (2)
  - Anaemia [Recovered/Resolved]
  - Toxic neuropathy [Recovered/Resolved]

NARRATIVE: CASE EVENT DATE: 201802
